FAERS Safety Report 12726852 (Version 3)
Quarter: 2016Q3

REPORT INFORMATION
  Report Type: Report from Study
  Country: US (occurrence: US)
  Receive Date: 20160908
  Receipt Date: 20160916
  Transmission Date: 20161109
  Serious: Yes (Other)
  Sender: FDA-Public Use
  Company Number: US-AMGEN-USASL2016119547

PATIENT
  Age: 90 Year
  Sex: Female

DRUGS (2)
  1. KYPROLIS [Suspect]
     Active Substance: CARFILZOMIB
     Dosage: 27 MG/M2, QWK, DAY 1,8,15, AND 22
     Route: 065
     Dates: start: 20160831
  2. KYPROLIS [Suspect]
     Active Substance: CARFILZOMIB
     Indication: PLASMA CELL MYELOMA
     Dosage: 27 MG/M2, QWK, DAY 1,8,15, AND 22
     Route: 065

REACTIONS (9)
  - Back disorder [Unknown]
  - Macular degeneration [Unknown]
  - Asthenia [Unknown]
  - Gait disturbance [Unknown]
  - Somnolence [Unknown]
  - Kidney infection [Unknown]
  - Musculoskeletal disorder [Unknown]
  - Confusional state [Unknown]
  - Urinary tract infection [Unknown]

NARRATIVE: CASE EVENT DATE: 2016
